FAERS Safety Report 5793965-7 (Version None)
Quarter: 2008Q2

REPORT INFORMATION
  Report Type: 
  Country: None (occurrence: None)
  Receive Date: 20080627
  Receipt Date: 20080616
  Transmission Date: 20081010
  Serious: Yes (Other)
  Sender: FDA-Public Use
  Company Number: JP-PFIZER INC-2008047730

PATIENT
  Sex: Female
  Weight: 50 kg

DRUGS (3)
  1. CHANTIX [Suspect]
     Indication: SMOKING CESSATION THERAPY
     Route: 048
  2. FAMOTIDINE [Concomitant]
     Route: 048
     Dates: start: 20080408, end: 20080512
  3. SELBEX [Concomitant]
     Route: 048
     Dates: start: 20080513, end: 20080601

REACTIONS (6)
  - CONSTIPATION [None]
  - FACE OEDEMA [None]
  - HOT FLUSH [None]
  - MALAISE [None]
  - PRURITUS [None]
  - RASH [None]
